FAERS Safety Report 7779844-4 (Version None)
Quarter: 2011Q3

REPORT INFORMATION
  Report Type: 
  Country: None (occurrence: None)
  Receive Date: 20110927
  Receipt Date: 20110923
  Transmission Date: 20111222
  Serious: Yes (Other)
  Sender: FDA-Public Use
  Company Number: AU-PFIZER INC-2011226256

PATIENT
  Sex: Female

DRUGS (1)
  1. LIDOCAINE [Suspect]
     Indication: CATARACT OPERATION
     Dosage: 2%

REACTIONS (3)
  - ACCIDENTAL EXPOSURE [None]
  - NEURALGIA [None]
  - HERPES ZOSTER [None]
